FAERS Safety Report 17879548 (Version 1)
Quarter: 2020Q2

REPORT INFORMATION
  Report Type: Spontaneous
  Country: CA (occurrence: CA)
  Receive Date: 20200610
  Receipt Date: 20200610
  Transmission Date: 20200714
  Serious: Yes (Life-Threatening, Hospitalization)
  Sender: FDA-Public Use
  Company Number: CA-ACCORD-184691

PATIENT
  Age: 12 Year
  Sex: Male
  Weight: 51 kg

DRUGS (6)
  1. CISPLATIN. [Suspect]
     Active Substance: CISPLATIN
     Indication: OSTEOSARCOMA
     Dosage: 1 EVERY 1 DAYS, STRENGTH: 10 MG/10 ML, 50MG/50ML.PRESERVATIV E-FREE.
     Route: 042
  2. METHOTREXATE. [Suspect]
     Active Substance: METHOTREXATE
     Indication: OSTEOSARCOMA
     Dosage: SOLUTION INTRA- ARTERIAL ONCE
     Route: 042
  3. DEXRAZOXANE. [Concomitant]
     Active Substance: DEXRAZOXANE
  4. FILGRASTIM [Concomitant]
     Active Substance: FILGRASTIM
  5. FOLINIC ACID [Concomitant]
     Active Substance: LEUCOVORIN
  6. ADRIAMYCIN [Suspect]
     Active Substance: DOXORUBICIN HYDROCHLORIDE
     Indication: OSTEOSARCOMA
     Dosage: 1 EVERY 1 DAYS
     Route: 042

REACTIONS (3)
  - Neutropenia [Recovering/Resolving]
  - Headache [Recovering/Resolving]
  - Pyrexia [Recovering/Resolving]
